FAERS Safety Report 5086291-5 (Version None)
Quarter: 2006Q3

REPORT INFORMATION
  Report Type: 
  Country: None (occurrence: None)
  Receive Date: 20060821
  Receipt Date: 20060821
  Transmission Date: 20061208
  Serious: No
  Sender: FDA-Public Use
  Company Number: None

PATIENT
  Age: 46 Year
  Sex: Male
  Weight: 87 kg

DRUGS (12)
  1. OMNISCAN [Suspect]
     Indication: HEPATIC NEOPLASM MALIGNANT
     Dosage: 40 CC ONE TIME IV  INJ
     Route: 042
     Dates: start: 20000518, end: 20000518
  2. OMNISCAN [Suspect]
     Indication: HEPATITIS C
     Dosage: 40 CC ONE TIME IV  INJ
     Route: 042
     Dates: start: 20000518, end: 20000518
  3. LASIX [Concomitant]
  4. ALDACTONE [Concomitant]
  5. PRILOSEC [Concomitant]
  6. LACTULOSE [Concomitant]
  7. CLOTRIMAZOLE [Concomitant]
  8. NAPROSYN [Concomitant]
  9. PROGRAF [Concomitant]
  10. GANCICLOVIR [Concomitant]
  11. URSODEL [Concomitant]
  12. MYCELEX [Concomitant]

REACTIONS (5)
  - JOINT CONTRACTURE [None]
  - MUSCULAR WEAKNESS [None]
  - NEPHROGENIC FIBROSING DERMOPATHY [None]
  - OEDEMA PERIPHERAL [None]
  - SKIN FIBROSIS [None]
